FAERS Safety Report 5776324-2 (Version None)
Quarter: 2008Q2

REPORT INFORMATION
  Report Type: 
  Country: None (occurrence: None)
  Receive Date: 20080618
  Receipt Date: 20080402
  Transmission Date: 20081010
  Serious: No
  Sender: FDA-Public Use
  Company Number: US-BAYER-200818921NA

PATIENT
  Age: 44 Year
  Sex: Female
  Weight: 89 kg

DRUGS (6)
  1. YAZ [Suspect]
     Indication: CONTRACEPTION
     Route: 048
     Dates: start: 20080324
  2. PROZAC [Concomitant]
  3. WELLBUTRIN [Concomitant]
  4. TRAMADOL HCL [Concomitant]
  5. IBUROFEN [Concomitant]
  6. FLUOXETINE [Concomitant]

REACTIONS (4)
  - ABDOMINAL PAIN [None]
  - DIZZINESS [None]
  - METRORRHAGIA [None]
  - NAUSEA [None]
